FAERS Safety Report 9775337 (Version 1)
Quarter: 2013Q4

REPORT INFORMATION
  Report Type: Spontaneous
  Country: IT (occurrence: IT)
  Receive Date: 20131220
  Receipt Date: 20131220
  Transmission Date: 20140711
  Serious: Yes (Hospitalization)
  Sender: FDA-Public Use
  Company Number: IT-ASTRAZENECA-2013SE90980

PATIENT
  Age: 15225 Day
  Sex: Female

DRUGS (5)
  1. SEROQUEL [Suspect]
     Indication: BIPOLAR I DISORDER
     Route: 048
  2. SEROQUEL [Suspect]
     Indication: BIPOLAR I DISORDER
     Route: 048
     Dates: start: 20131210, end: 20131210
  3. DEPAKIN [Concomitant]
     Indication: BIPOLAR I DISORDER
     Route: 048
  4. ALBILIFY [Concomitant]
     Indication: BIPOLAR I DISORDER
     Route: 048
  5. DAPAROX [Concomitant]
     Indication: BIPOLAR I DISORDER
     Route: 048

REACTIONS (2)
  - Overdose [Unknown]
  - Sensorimotor disorder [Recovering/Resolving]
